FAERS Safety Report 9351913 (Version 1)
Quarter: 2013Q2

REPORT INFORMATION
  Report Type: Spontaneous
  Country: GB (occurrence: GB)
  Receive Date: 20130617
  Receipt Date: 20130617
  Transmission Date: 20140414
  Serious: Yes (Hospitalization)
  Sender: FDA-Public Use
  Company Number: GB-GLAXOSMITHKLINE-B0897678A

PATIENT
  Age: 68 Year
  Sex: Male

DRUGS (5)
  1. VOTRIENT [Suspect]
     Indication: RENAL CANCER METASTATIC
     Dates: start: 201105, end: 20130429
  2. ANTIHYPERTENSIVES [Concomitant]
  3. PARACETAMOL [Concomitant]
  4. CODEINE [Concomitant]
  5. STATINS [Concomitant]

REACTIONS (2)
  - Aortic aneurysm rupture [Recovered/Resolved]
  - Syncope [Recovered/Resolved]
